FAERS Safety Report 16119299 (Version 1)
Quarter: 2019Q1

REPORT INFORMATION
  Report Type: Spontaneous
  Country: CA (occurrence: CA)
  Receive Date: 20190326
  Receipt Date: 20190326
  Transmission Date: 20190418
  Serious: Yes (Hospitalization)
  Sender: FDA-Public Use
  Company Number: CA-JNJFOC-20190326644

PATIENT
  Age: 69 Year
  Sex: Female
  Weight: 95 kg

DRUGS (7)
  1. INVOKANA [Suspect]
     Active Substance: CANAGLIFLOZIN
     Indication: TYPE 2 DIABETES MELLITUS
     Route: 048
  2. ATORVASTATIN CALCIUM. [Concomitant]
     Active Substance: ATORVASTATIN CALCIUM
     Route: 065
  3. LOSARTAN. [Concomitant]
     Active Substance: LOSARTAN
     Route: 065
  4. NOVOLIN GE [Concomitant]
     Active Substance: INSULIN HUMAN
     Dosage: NOVOLIN GE 30/70 INJ SUS
     Route: 058
  5. EZETROL [Concomitant]
     Active Substance: EZETIMIBE
     Route: 065
  6. ASPIRIN. [Suspect]
     Active Substance: ASPIRIN
     Indication: PRODUCT USED FOR UNKNOWN INDICATION
     Route: 065
  7. LUMIGAN [Concomitant]
     Active Substance: BIMATOPROST
     Route: 047

REACTIONS (11)
  - Blood glucose increased [Recovered/Resolved]
  - Blood lactic acid abnormal [Recovered/Resolved]
  - Device malfunction [Recovered/Resolved]
  - Chills [Recovered/Resolved]
  - Diabetic ketoacidosis [Recovered/Resolved]
  - Malaise [Recovered/Resolved]
  - Glycosylated haemoglobin abnormal [Recovered/Resolved]
  - Vomiting [Recovered/Resolved]
  - Mental status changes [Recovered/Resolved]
  - Blood glucose abnormal [Recovered/Resolved]
  - Blood creatine increased [Recovered/Resolved]
